FAERS Safety Report 20790948 (Version 1)
Quarter: 2022Q2

REPORT INFORMATION
  Report Type: Report from Study
  Country: CO (occurrence: CO)
  Receive Date: 20220505
  Receipt Date: 20220505
  Transmission Date: 20220721
  Serious: Yes (Hospitalization)
  Sender: FDA-Public Use
  Company Number: CO-ABBVIE-22K-036-4379208-00

PATIENT
  Age: 58 Year
  Sex: Male
  Weight: 50 kg

DRUGS (2)
  1. ZEMPLAR [Suspect]
     Active Substance: PARICALCITOL
     Indication: Hyperparathyroidism secondary
     Dosage: 1 UNIT DOSE POST-DIALYSIS
     Route: 042
     Dates: start: 20190510, end: 2022
  2. ZEMPLAR [Suspect]
     Active Substance: PARICALCITOL
     Indication: Chronic kidney disease
     Dosage: 1 UNIT DOSE POST-DIALYSIS
     Route: 042
     Dates: start: 202204

REACTIONS (2)
  - Lung disorder [Recovering/Resolving]
  - Pneumonia [Recovering/Resolving]

NARRATIVE: CASE EVENT DATE: 20220206
